FAERS Safety Report 9633612 (Version 5)
Quarter: 2014Q1

REPORT INFORMATION
  Report Type: Report from Study
  Country: US (occurrence: US)
  Receive Date: 20131021
  Receipt Date: 20140304
  Transmission Date: 20141002
  Serious: Yes (Death)
  Sender: FDA-Public Use
  Company Number: US-SA-2013SA104234

PATIENT
  Age: 65 Year
  Sex: Female
  Weight: 63.5 kg

DRUGS (6)
  1. AUBAGIO [Suspect]
     Indication: MULTIPLE SCLEROSIS
     Route: 048
     Dates: start: 20130430, end: 20130827
  2. AMITRIPTYLINE [Concomitant]
     Indication: DEPRESSION
     Route: 065
  3. BACLOFEN [Concomitant]
     Indication: MUSCLE SPASTICITY
     Route: 065
  4. CIPRO [Concomitant]
     Indication: URINARY TRACT INFECTION
     Route: 065
  5. DETROL [Concomitant]
     Indication: NEUROGENIC BLADDER
     Route: 065
  6. TRAMADOL [Concomitant]
     Indication: PAIN
     Route: 065

REACTIONS (1)
  - Pneumonia [Fatal]
